FAERS Safety Report 21021691 (Version 1)
Quarter: 2022Q2

REPORT INFORMATION
  Report Type: Spontaneous
  Country: US (occurrence: None)
  Receive Date: 20220628
  Receipt Date: 20220628
  Transmission Date: 20220720
  Serious: Yes (Hospitalization)
  Sender: FDA-Public Use
  Company Number: None

PATIENT
  Sex: Female

DRUGS (7)
  1. GILENYA [Suspect]
     Active Substance: FINGOLIMOD HYDROCHLORIDE
     Indication: Multiple sclerosis
     Dosage: OTHER QUANTITY : 0.5MG;?FREQUENCY : AS DIRECTED;?
     Route: 048
     Dates: start: 20150909
  2. ASACOL [Concomitant]
     Active Substance: MESALAMINE
  3. ASPIRIN CHW [Concomitant]
  4. BENTYL [Concomitant]
     Active Substance: DICYCLOMINE HYDROCHLORIDE
  5. VITAMIN D [Concomitant]
     Active Substance: VITAMIN D NOS
  6. OMEPRAZOLE [Concomitant]
     Active Substance: OMEPRAZOLE
  7. TRESIBA INJ [Concomitant]

REACTIONS (5)
  - Pyrexia [None]
  - Dizziness [None]
  - Visual impairment [None]
  - Hypertension [None]
  - Drug ineffective [None]
